FAERS Safety Report 25895630 (Version 4)
Quarter: 2025Q4

REPORT INFORMATION
  Report Type: Report from Study
  Country: EU (occurrence: EU)
  Receive Date: 20251008
  Receipt Date: 20251105
  Transmission Date: 20260118
  Serious: Yes (Hospitalization, Other)
  Sender: PFIZER
  Company Number: EU-BIOVITRUM-2025-BE-013190

PATIENT
  Age: 38 Year
  Sex: Male

DRUGS (11)
  1. MEDROL [Suspect]
     Active Substance: METHYLPREDNISOLONE
     Dosage: 8 MG/DAY
  2. PEGCETACOPLAN [Suspect]
     Active Substance: PEGCETACOPLAN
     Indication: C3 glomerulopathy
     Dosage: 1080 MG2X/WEEK
     Route: 058
     Dates: start: 20250918, end: 20250918
  3. CELLCEPT [Suspect]
     Active Substance: MYCOPHENOLATE MOFETIL
     Dosage: 250 X 2
  4. BACTRIM [Suspect]
     Active Substance: SULFAMETHOXAZOLE\TRIMETHOPRIM
  5. TACROLIMUS [Concomitant]
     Active Substance: TACROLIMUS
     Dosage: 10 MG
  6. NOBITEN [NEBIVOLOL] [Concomitant]
     Dosage: 5MG TABLET2 X 5 MG/DAY
  7. LERCANIDIPINE HYDROCHLORIDE [Concomitant]
     Active Substance: LERCANIDIPINE HYDROCHLORIDE
     Dosage: 10 MG, 2X/DAY
  8. TERAZOSIN [Concomitant]
     Active Substance: TERAZOSIN HYDROCHLORIDE
     Dosage: 2 MG
  9. LOSARTAN POTASSIUM [Concomitant]
     Active Substance: LOSARTAN POTASSIUM
     Dosage: 50 MG, DAILY (1/2 CO/DAY)
  10. ATORVASTATIN [Concomitant]
     Active Substance: ATORVASTATIN
     Dosage: UNK
  11. AZITHROMYCIN [Concomitant]
     Active Substance: AZITHROMYCIN
     Dosage: UNK

REACTIONS (6)
  - Neutropenia [Recovering/Resolving]
  - Bacteraemia [Recovering/Resolving]
  - Diarrhoea [Recovering/Resolving]
  - Sepsis [Unknown]
  - Acute kidney injury [Recovering/Resolving]
  - Bacterial translocation [Unknown]
